FAERS Safety Report 5481508-7 (Version None)
Quarter: 2007Q4

REPORT INFORMATION
  Report Type: 
  Country: None (occurrence: None)
  Receive Date: 20071010
  Receipt Date: 20071002
  Transmission Date: 20080405
  Serious: Yes (Death, Hospitalization)
  Sender: FDA-Public Use
  Company Number: US-AVENTIS-200717545GDDC

PATIENT
  Age: 70 Year
  Sex: Female
  Weight: 63.5 kg

DRUGS (10)
  1. TAXOTERE [Suspect]
     Route: 042
     Dates: start: 20070628, end: 20070628
  2. CODE UNBROKEN [Suspect]
     Dosage: DOSE: UNK DOSE FROM DAY 1 TO DAY 14
     Route: 048
     Dates: start: 20070628, end: 20070704
  3. METOPROLOL TARTRATE [Concomitant]
     Indication: MYOCARDIAL INFARCTION
     Dates: start: 20070212
  4. OMEPRAZOLE [Concomitant]
     Dates: start: 20000601
  5. PROCHLORPERAZINE EDISYLATE [Concomitant]
     Indication: NAUSEA
     Dates: start: 20070222
  6. SERETIDE [Concomitant]
     Dosage: DOSE: 1 PUFF
     Dates: start: 20070212
  7. DEXAMETHASONE 0.5MG TAB [Concomitant]
     Dosage: DOSE: 4 MG DAY BEFORE, DAY OF AND DAY AFTER CHEMO
     Dates: start: 20070220, end: 20070706
  8. WARFARIN SODIUM [Concomitant]
     Dates: start: 20070212
  9. LORAZEPAM [Concomitant]
     Indication: ANXIETY
     Dates: start: 20070628
  10. DARBEPOETIN ALFA [Concomitant]
     Dosage: DOSE: 150 MCG
     Dates: start: 20070517

REACTIONS (4)
  - ANAEMIA [None]
  - FEBRILE NEUTROPENIA [None]
  - NON-SMALL CELL LUNG CANCER METASTATIC [None]
  - PULMONARY EMBOLISM [None]
